FAERS Safety Report 5117103-9 (Version None)
Quarter: 2006Q3

REPORT INFORMATION
  Report Type: 
  Country: None (occurrence: None)
  Receive Date: 20060925
  Receipt Date: 20060912
  Transmission Date: 20061208
  Serious: Yes (Hospitalization, Other)
  Sender: FDA-Public Use
  Company Number: 2005131180

PATIENT
  Age: 34 Year
  Sex: Female

DRUGS (4)
  1. GENOTROPIN [Suspect]
     Indication: HYPOPITUITARISM
     Dosage: 0.3 MG (0.3 MG, 1 IN 1 D)
     Dates: end: 20050927
  2. LEVOTHYROXINE SODIUM [Concomitant]
  3. NIFEREX      (POLYSACCHARIDE-IRON COMPLEX) [Concomitant]
  4. FOLLISTREL (LEVONORGESTREL) [Concomitant]

REACTIONS (2)
  - MENINGIOMA [None]
  - NEOPLASM PROGRESSION [None]
